FAERS Safety Report 17566080 (Version 1)
Quarter: 2020Q1

REPORT INFORMATION
  Report Type: Spontaneous
  Country: US (occurrence: US)
  Receive Date: 20200320
  Receipt Date: 20200320
  Transmission Date: 20200409
  Serious: Yes (Death)
  Sender: FDA-Public Use
  Company Number: US-MEITHEAL PHARMACEUTICALS-2020MHL00009

PATIENT

DRUGS (1)
  1. CARBOPLATIN. [Suspect]
     Active Substance: CARBOPLATIN
     Indication: BRAIN NEOPLASM
     Dosage: UNK UNK, 3X/DAY (ON DAYS -8, -7, -6)
     Route: 065

REACTIONS (4)
  - Renal failure [Fatal]
  - Multiple organ dysfunction syndrome [Fatal]
  - Transplant failure [Fatal]
  - Infection [Fatal]
